FAERS Safety Report 9068850 (Version 3)
Quarter: 2014Q3

REPORT INFORMATION
  Report Type: Spontaneous
  Country: PL (occurrence: None)
  Receive Date: 20130122
  Receipt Date: 20140702
  Transmission Date: 20150326
  Serious: Yes (Hospitalization, Other)
  Sender: FDA-Public Use
  Company Number: 2013000004

PATIENT
  Age: 76 Year
  Sex: Male

DRUGS (5)
  1. ACEON [Suspect]
     Active Substance: PERINDOPRIL ERBUMINE
     Indication: CORONARY ARTERY DISEASE
     Route: 048
     Dates: start: 20120531, end: 20120612
  2. BISOCARD (BISOPROLOL FUMARATE) [Concomitant]
  3. AREPLEX (CLOPIDOGREL BISULFATE) [Concomitant]
  4. ATORIS (ATORVASTATIN CALCIUM) [Concomitant]
  5. ACARD (ACETYLSALICYLIC ACID) [Concomitant]

REACTIONS (15)
  - Memory impairment [None]
  - Asthenia [None]
  - Visual field defect [None]
  - Blood pressure decreased [None]
  - Ejection fraction decreased [None]
  - Diarrhoea [None]
  - Feeling cold [None]
  - Sinus tachycardia [None]
  - Gait disturbance [None]
  - Heart rate increased [None]
  - Tricuspid valve incompetence [None]
  - Tremor [None]
  - Mitral valve incompetence [None]
  - Dizziness [None]
  - Weight decreased [None]

NARRATIVE: CASE EVENT DATE: 201207
